FAERS Safety Report 6077318-2 (Version None)
Quarter: 2009Q1

REPORT INFORMATION
  Report Type: 
  Country: None (occurrence: None)
  Receive Date: 20090213
  Receipt Date: 20090212
  Transmission Date: 20090719
  Serious: Yes (Life-Threatening)
  Sender: FDA-Public Use
  Company Number: B0547782A

PATIENT
  Age: 2 Year
  Sex: Female
  Weight: 9.4 kg

DRUGS (6)
  1. ABACAVIR [Suspect]
     Indication: HIV INFECTION
     Dosage: 80MG TWICE PER DAY
     Route: 048
     Dates: start: 20080825
  2. LAMIVUDINE [Suspect]
     Indication: HIV INFECTION
     Dosage: 40MG TWICE PER DAY
     Route: 048
     Dates: start: 20080825
  3. ZIDOVUDINE [Suspect]
     Indication: HIV INFECTION
     Dosage: 90MG TWICE PER DAY
     Route: 048
     Dates: start: 20080825
  4. NEVIRAPINE [Suspect]
     Indication: HIV INFECTION
     Dosage: 90MG TWICE PER DAY
     Route: 048
     Dates: start: 20080825
  5. COTRIMOXAZOLE [Suspect]
     Indication: HIV INFECTION
     Dosage: 240MG PER DAY
     Route: 048
     Dates: start: 20080825, end: 20081124
  6. MULTI-VITAMINS [Concomitant]
     Indication: HIV INFECTION

REACTIONS (10)
  - BACTERAEMIA [None]
  - DECREASED APPETITE [None]
  - MALARIA [None]
  - NEUTROPENIA [None]
  - PRODUCTIVE COUGH [None]
  - PYREXIA [None]
  - RESPIRATORY RATE INCREASED [None]
  - TONSILLITIS [None]
  - UPPER RESPIRATORY TRACT INFECTION [None]
  - VOMITING [None]
